FAERS Safety Report 6820757-X (Version None)
Quarter: 2010Q3

REPORT INFORMATION
  Report Type: 
  Country: None (occurrence: None)
  Receive Date: 20100707
  Receipt Date: 20070601
  Transmission Date: 20110219
  Serious: No
  Sender: FDA-Public Use
  Company Number: US-PFIZER INC-2007045058

PATIENT
  Sex: Male
  Weight: 29.1 kg

DRUGS (3)
  1. ZOLOFT [Suspect]
     Indication: DEPRESSION
     Dates: start: 20060901
  2. ZOLOFT [Suspect]
     Indication: ABNORMAL BEHAVIOUR
  3. ADDERALL 10 [Concomitant]

REACTIONS (7)
  - ABDOMINAL PAIN UPPER [None]
  - FATIGUE [None]
  - HEADACHE [None]
  - IRRITABILITY [None]
  - MEDICATION ERROR [None]
  - PAIN IN EXTREMITY [None]
  - WHITE BLOOD CELL COUNT ABNORMAL [None]
